FAERS Safety Report 10215553 (Version 2)
Quarter: 2014Q2

REPORT INFORMATION
  Report Type: Report from Study
  Country: US (occurrence: US)
  Receive Date: 20140604
  Receipt Date: 20140623
  Transmission Date: 20141212
  Serious: No
  Sender: FDA-Public Use
  Company Number: US-BIOGENIDEC-2014BI051753

PATIENT
  Age: 35 Year
  Sex: Female

DRUGS (4)
  1. TECFIDERA [Suspect]
     Indication: MULTIPLE SCLEROSIS
     Route: 048
     Dates: start: 201306, end: 201306
  2. TECFIDERA [Suspect]
     Indication: MULTIPLE SCLEROSIS
  3. TECFIDERA [Suspect]
     Indication: MULTIPLE SCLEROSIS
  4. OMEPRAZOLE [Concomitant]
     Indication: VOMITING

REACTIONS (6)
  - Migraine [Unknown]
  - Wheezing [Unknown]
  - Irritable bowel syndrome [Unknown]
  - Lung disorder [Unknown]
  - Fall [Recovered/Resolved]
  - Memory impairment [Unknown]
